FAERS Safety Report 16475391 (Version 1)
Quarter: 2019Q2

REPORT INFORMATION
  Report Type: Spontaneous
  Country: JP (occurrence: JP)
  Receive Date: 20190625
  Receipt Date: 20190625
  Transmission Date: 20190711
  Serious: Yes (Other)
  Sender: FDA-Public Use
  Company Number: PHJP2019JP007372

PATIENT
  Age: 62 Year
  Sex: Female

DRUGS (3)
  1. TAFLUPROST [Concomitant]
     Active Substance: TAFLUPROST
     Dosage: UNK
     Route: 047
     Dates: start: 201312
  2. AZOPT [Suspect]
     Active Substance: BRINZOLAMIDE
     Indication: NORMAL TENSION GLAUCOMA
     Dosage: UNK
     Route: 047
  3. TAFLUPROST [Concomitant]
     Active Substance: TAFLUPROST
     Indication: NORMAL TENSION GLAUCOMA
     Dosage: UNK
     Route: 047

REACTIONS (3)
  - Optic disc haemorrhage [Unknown]
  - Retinal disorder [Unknown]
  - Visual field defect [Unknown]

NARRATIVE: CASE EVENT DATE: 201812
